FAERS Safety Report 5648865-X (Version None)
Quarter: 2008Q1

REPORT INFORMATION
  Report Type: 
  Country: None (occurrence: None)
  Receive Date: 20080303
  Receipt Date: 20080303
  Transmission Date: 20080703
  Serious: Yes (Hospitalization)
  Sender: FDA-Public Use
  Company Number: None

PATIENT
  Age: 79 Year
  Sex: Male

DRUGS (2)
  1. WARFARIN SODIUM [Suspect]
     Indication: CARDIAC OPERATION
     Dosage: 5MG EVERY DAY PO
     Route: 048
     Dates: start: 20071101, end: 20071105
  2. ENOXAPARIN SODIUM [Suspect]
     Dosage: 80MG BID SQ
     Route: 058
     Dates: start: 20071101, end: 20071103

REACTIONS (2)
  - HAEMATOMA [None]
  - INTERNATIONAL NORMALISED RATIO ABNORMAL [None]
